FAERS Safety Report 10089357 (Version 12)
Quarter: 2015Q2

REPORT INFORMATION
  Report Type: Report from Study
  Country: AU (occurrence: AU)
  Receive Date: 20140421
  Receipt Date: 20150525
  Transmission Date: 20150821
  Serious: Yes (Other)
  Sender: FDA-Public Use
  Company Number: AU-ROCHE-1380579

PATIENT
  Age: 37 Year
  Sex: Female
  Weight: 112 kg

DRUGS (24)
  1. MAXOLON [Concomitant]
     Active Substance: METOCLOPRAMIDE HYDROCHLORIDE
     Route: 065
     Dates: start: 20111210
  2. SOMAC [Concomitant]
     Active Substance: PANTOPRAZOLE SODIUM
     Route: 065
     Dates: start: 20120628
  3. MELOXICAM. [Concomitant]
     Active Substance: MELOXICAM
     Route: 065
     Dates: start: 20121018
  4. FENTANYL TRANSDERMAL [Concomitant]
     Active Substance: FENTANYL
     Route: 065
     Dates: start: 20130111, end: 20130724
  5. STEMETIL [Concomitant]
     Active Substance: PROCHLORPERAZINE MALEATE
     Route: 065
     Dates: start: 20130307
  6. PANADEINE [Concomitant]
     Active Substance: ACETAMINOPHEN\CODEINE PHOSPHATE
     Route: 065
     Dates: start: 2009
  7. AVANZA [Concomitant]
     Active Substance: MIRTAZAPINE
     Dosage: 1 TABLET DAILY
     Route: 065
     Dates: start: 20111129
  8. CLARITHROMYCIN. [Concomitant]
     Active Substance: CLARITHROMYCIN
     Route: 065
     Dates: start: 20121116
  9. ENDONE [Concomitant]
     Active Substance: OXYCODONE HYDROCHLORIDE
     Route: 065
     Dates: start: 20130725
  10. NUROFEN [Concomitant]
     Active Substance: IBUPROFEN
     Route: 065
     Dates: start: 20120313
  11. MERSYNDOL [Concomitant]
     Dosage: DAILY 2 TAB
     Route: 065
     Dates: start: 1995
  12. AMPHOTERICIN LOZENGES [Concomitant]
     Route: 065
     Dates: start: 20120824
  13. SOLPRIN [Concomitant]
     Active Substance: ASPIRIN
     Route: 065
     Dates: start: 1995
  14. POLARAMINE [Concomitant]
     Active Substance: DEXCHLORPHENIRAMINE MALEATE
     Route: 065
     Dates: start: 1995
  15. MOTILIUM [Concomitant]
     Active Substance: DOMPERIDONE
     Route: 065
     Dates: start: 20130307
  16. PRISTIQ EXTENDED RELEASE [Concomitant]
     Active Substance: DESVENLAFAXINE SUCCINATE
     Route: 065
     Dates: start: 20140104
  17. PANADOL (AUSTRALIA) [Concomitant]
     Route: 065
     Dates: start: 20111118
  18. YAZ [Concomitant]
     Active Substance: DROSPIRENONE\ETHINYL ESTRADIOL
     Dosage: DAILY 1 TAB
     Route: 065
     Dates: start: 20111110
  19. TRIMETHOPRIM. [Concomitant]
     Active Substance: TRIMETHOPRIM
     Route: 065
     Dates: start: 20120503
  20. DIPROSONE [Concomitant]
     Active Substance: BETAMETHASONE DIPROPIONATE
     Route: 065
     Dates: start: 20121115
  21. ALPRIM (AUSTRALIA) [Concomitant]
     Route: 065
     Dates: start: 20130314
  22. FENTANYL TRANSDERMAL [Concomitant]
     Active Substance: FENTANYL
     Route: 065
     Dates: start: 20130725
  23. SOLPRIN [Concomitant]
     Active Substance: ASPIRIN
     Route: 065
     Dates: start: 2015
  24. VEMURAFENIB [Suspect]
     Active Substance: VEMURAFENIB
     Indication: METASTATIC MALIGNANT MELANOMA
     Dosage: DATE OF LAST DOSE PRIOR TO SAE : 26/MAR/2014.
     Route: 048
     Dates: start: 20111107, end: 20140404

REACTIONS (1)
  - Pancreatic carcinoma [Not Recovered/Not Resolved]

NARRATIVE: CASE EVENT DATE: 20140326
